FAERS Safety Report 5385372-6 (Version None)
Quarter: 2007Q3

REPORT INFORMATION
  Report Type: 
  Country: None (occurrence: None)
  Receive Date: 20070709
  Receipt Date: 20070621
  Transmission Date: 20080115
  Serious: Yes (Death, Life-Threatening, Hospitalization)
  Sender: FDA-Public Use
  Company Number: DSA_30177_2007

PATIENT
  Age: 39 Year
  Sex: Female

DRUGS (4)
  1. LORAZEPAM (LORAZEPAM) (BIOVAIL) [Suspect]
     Dosage: DF OVERDOSE ORAL
     Route: 048
  2. AMOXAPINE [Suspect]
     Dosage: DF OVERDOSE ORAL; 1 DAY UNTIL NOT CONTINUING
     Route: 048
  3. FLUNITRAZEPAM (FLUNITRAZEPAM) [Suspect]
     Dosage: DF OVERDOSE ORAL
     Route: 048
  4. ETIZOLAM (ETIZOLAM) [Suspect]
     Dosage: DF OVERDOSE ORAL; 1 DAY UNTIL NOT CONTINUING
     Route: 048

REACTIONS (13)
  - AREFLEXIA [None]
  - ASPIRATION [None]
  - BLOOD PRESSURE DECREASED [None]
  - BRAIN DEATH [None]
  - DIALYSIS [None]
  - LOSS OF CONSCIOUSNESS [None]
  - METABOLIC ACIDOSIS [None]
  - MULTIPLE DRUG OVERDOSE INTENTIONAL [None]
  - NEUROLEPTIC MALIGNANT SYNDROME [None]
  - TACHYCARDIA [None]
  - TONIC CONVULSION [None]
  - VENTRICULAR EXTRASYSTOLES [None]
  - VOMITING [None]
